FAERS Safety Report 24211204 (Version 1)
Quarter: 2024Q3

REPORT INFORMATION
  Report Type: Spontaneous
  Country: US (occurrence: US)
  Receive Date: 20240814
  Receipt Date: 20240814
  Transmission Date: 20241016
  Serious: Yes (Other)
  Sender: ACELLA
  Company Number: US-ACELLA PHARMACEUTICALS, LLC-2024ALO00394

PATIENT
  Age: 53 Year
  Sex: Female

DRUGS (2)
  1. DOXYCYCLINE [Suspect]
     Active Substance: DOXYCYCLINE\DOXYCYCLINE HYCLATE
     Indication: Filariasis lymphatic
     Dosage: 200 MG, 1X/DAY FOR 6 WEEKS (ADMINISTERED WITH MEALS TOGETHER WITH 250 ML OF WATER)
     Route: 048
  2. DOXYCYCLINE [Suspect]
     Active Substance: DOXYCYCLINE\DOXYCYCLINE HYCLATE
     Indication: Lymphoedema

REACTIONS (1)
  - Hepatic encephalopathy [Unknown]
